FAERS Safety Report 11787086 (Version 1)
Quarter: 2015Q4

REPORT INFORMATION
  Report Type: Spontaneous
  Country: US (occurrence: US)
  Receive Date: 20151130
  Receipt Date: 20151130
  Transmission Date: 20160305
  Serious: No
  Sender: FDA-Public Use
  Company Number: US-CELGENEUS-USA-2015116039

PATIENT
  Sex: Female

DRUGS (1)
  1. REVLIMID [Suspect]
     Active Substance: LENALIDOMIDE
     Indication: PLASMA CELL MYELOMA
     Dosage: 25 MILLIGRAM
     Route: 048
     Dates: start: 201508

REACTIONS (9)
  - Hypoaesthesia [Unknown]
  - Constipation [Unknown]
  - Muscle spasms [Unknown]
  - Oropharyngeal pain [Unknown]
  - Vision blurred [Unknown]
  - Dry mouth [Unknown]
  - Abdominal distension [Unknown]
  - Panic attack [Unknown]
  - Fatigue [Unknown]

NARRATIVE: CASE EVENT DATE: 2015
